FAERS Safety Report 20099710 (Version 1)
Quarter: 2021Q4

REPORT INFORMATION
  Report Type: Spontaneous
  Country: IT (occurrence: IT)
  Receive Date: 20211123
  Receipt Date: 20211123
  Transmission Date: 20220303
  Serious: Yes (Hospitalization)
  Sender: FDA-Public Use
  Company Number: IT-MINISAL02-779398

PATIENT
  Age: 82 Year
  Sex: Female

DRUGS (10)
  1. RIVAROXABAN [Suspect]
     Active Substance: RIVAROXABAN
     Indication: Atrial fibrillation
     Dosage: 1 DOSAGE FORM, DAILY
     Route: 048
     Dates: end: 20210725
  2. HYDROCHLOROTHIAZIDE\VALSARTAN [Suspect]
     Active Substance: HYDROCHLOROTHIAZIDE\VALSARTAN
     Indication: Hypertension
     Dosage: 1 DOSAGE FORM, DAILY
     Route: 048
     Dates: end: 20210725
  3. REPAGLINIDE [Suspect]
     Active Substance: REPAGLINIDE
     Indication: Type 2 diabetes mellitus
     Dosage: 5 DOSAGE FORM, DAILY
     Route: 048
     Dates: end: 20210725
  4. GLIMEPIRIDE [Suspect]
     Active Substance: GLIMEPIRIDE
     Indication: Type 2 diabetes mellitus
     Dosage: 1 DOSAGE FORM, DAILY
     Route: 048
     Dates: end: 20210725
  5. PATROL 37.5 MG / 325 MG, FILM COATED TABLETS [Concomitant]
     Indication: Product used for unknown indication
     Dosage: ()
     Route: 065
  6. LASIX [Concomitant]
     Active Substance: FUROSEMIDE
     Indication: Product used for unknown indication
     Dosage: ()
     Route: 065
  7. ATORVASTATIN [Concomitant]
     Active Substance: ATORVASTATIN
     Indication: Product used for unknown indication
     Dosage: ()
     Route: 065
  8. NATECAL D3 600 MG + 400 I.U. CHEWABLE TABLETS [Concomitant]
     Indication: Product used for unknown indication
     Dosage: ()
     Route: 065
  9. ESOMEPRAZOLE SODIUM [Concomitant]
     Active Substance: ESOMEPRAZOLE SODIUM
     Indication: Product used for unknown indication
     Dosage: ()
     Route: 065
  10. DILZENE 60 MG MODIFIED RELEASE TABLETS [Concomitant]
     Indication: Product used for unknown indication
     Dosage: ()
     Route: 065

REACTIONS (4)
  - Anaemia [Recovering/Resolving]
  - Poverty of speech [Recovering/Resolving]
  - Bradycardia [Recovering/Resolving]
  - Hypoglycaemia [Recovering/Resolving]

NARRATIVE: CASE EVENT DATE: 20210725
